FAERS Safety Report 12350493 (Version 1)
Quarter: 2016Q2

REPORT INFORMATION
  Report Type: Report from Study
  Country: US (occurrence: US)
  Receive Date: 20160510
  Receipt Date: 20160510
  Transmission Date: 20160815
  Serious: No
  Sender: FDA-Public Use
  Company Number: US-009507513-1605USA002143

PATIENT
  Sex: Male

DRUGS (4)
  1. METFORMIN [Suspect]
     Active Substance: METFORMIN HYDROCHLORIDE
  2. JANUVIA [Suspect]
     Active Substance: SITAGLIPTIN PHOSPHATE
     Route: 048
  3. TOUJEO [Suspect]
     Active Substance: INSULIN GLARGINE
     Dosage: DAILY DOSE: 30, UNK
  4. NOVOLOG [Suspect]
     Active Substance: INSULIN ASPART
     Dosage: DAILY DOSE: 10, UNK

REACTIONS (3)
  - Confusional state [Recovered/Resolved]
  - Blood glucose decreased [Unknown]
  - Drug ineffective [Unknown]
